FAERS Safety Report 12842526 (Version 1)
Quarter: 2016Q4

REPORT INFORMATION
  Report Type: Spontaneous
  Country: None (occurrence: US)
  Receive Date: 20161012
  Receipt Date: 20161012
  Transmission Date: 20170207
  Serious: No
  Sender: FDA-Public Use
  Company Number: None

PATIENT
  Age: 43 Year
  Sex: Female
  Weight: 70 kg

DRUGS (3)
  1. TRI-PHASIL [Suspect]
     Active Substance: ETHINYL ESTRADIOL\LEVONORGESTREL
  2. MYPRDOL [Concomitant]
  3. NORDETTE [Suspect]
     Active Substance: ETHINYL ESTRADIOL\LEVONORGESTREL

REACTIONS (3)
  - Spinal pain [None]
  - Cyst [None]
  - Proctalgia [None]
